FAERS Safety Report 17712040 (Version 1)
Quarter: 2020Q2

REPORT INFORMATION
  Report Type: Spontaneous
  Country: MY (occurrence: MY)
  Receive Date: 20200427
  Receipt Date: 20200427
  Transmission Date: 20200714
  Serious: Yes (Death)
  Sender: FDA-Public Use
  Company Number: MY-ROCHE-2576110

PATIENT
  Age: 69 Year
  Sex: Male
  Weight: 85 kg

DRUGS (1)
  1. ACTEMRA [Suspect]
     Active Substance: TOCILIZUMAB
     Indication: CORONAVIRUS INFECTION
     Dosage: 1 DOSE
     Route: 042
     Dates: start: 20200326, end: 20200326

REACTIONS (4)
  - Off label use [Unknown]
  - Pulmonary embolism [Fatal]
  - Intentional product use issue [Unknown]
  - Pneumonia [Fatal]

NARRATIVE: CASE EVENT DATE: 20200326
